FAERS Safety Report 8777443 (Version 5)
Quarter: 2013Q2

REPORT INFORMATION
  Report Type: Report from Study
  Country: GR (occurrence: GR)
  Receive Date: 20120911
  Receipt Date: 20130415
  Transmission Date: 20140414
  Serious: Yes (Hospitalization, Other)
  Sender: FDA-Public Use
  Company Number: GR-CELGENEUS-066-21880-12090452

PATIENT
  Age: 79 Year
  Sex: Male

DRUGS (22)
  1. REVLIMID [Suspect]
     Indication: PLASMA CELL MYELOMA
     Dosage: 10 MILLIGRAM
     Route: 048
     Dates: start: 20120614, end: 20120716
  2. DEXAMETHASONE [Suspect]
     Indication: PLASMA CELL MYELOMA
     Dosage: 40 MILLIGRAM
     Route: 048
     Dates: start: 20120614, end: 20120716
  3. INSULIN GLARGINE [Concomitant]
     Indication: PRODUCT USED FOR UNKNOWN INDICATION
     Route: 065
     Dates: start: 2002, end: 20120716
  4. FONDAPARINUX [Concomitant]
     Indication: PRODUCT USED FOR UNKNOWN INDICATION
     Route: 065
     Dates: start: 2002, end: 20120716
  5. ALLOPURINOL [Concomitant]
     Indication: PRODUCT USED FOR UNKNOWN INDICATION
     Route: 065
     Dates: start: 2007, end: 20120716
  6. ALLOPURINOL [Concomitant]
     Route: 065
     Dates: start: 20120723, end: 20120910
  7. FENTANYL [Concomitant]
     Indication: PRODUCT USED FOR UNKNOWN INDICATION
     Route: 065
     Dates: start: 20120528, end: 20120716
  8. LONALGAL [Concomitant]
     Indication: PRODUCT USED FOR UNKNOWN INDICATION
     Route: 065
     Dates: start: 20120528, end: 20120716
  9. VALACICLOVIR [Concomitant]
     Indication: PRODUCT USED FOR UNKNOWN INDICATION
     Route: 065
     Dates: start: 20120614, end: 20120716
  10. VALACICLOVIR [Concomitant]
     Route: 065
     Dates: start: 20120723, end: 20120910
  11. IDEOS [Concomitant]
     Indication: PRODUCT USED FOR UNKNOWN INDICATION
     Route: 065
     Dates: start: 20120710, end: 20120716
  12. IDEOS [Concomitant]
     Route: 065
     Dates: start: 20120723, end: 20120910
  13. PANTOPRAZOLE [Concomitant]
     Indication: PRODUCT USED FOR UNKNOWN INDICATION
     Route: 065
     Dates: start: 20120710, end: 20120716
  14. PANTOPRAZOLE [Concomitant]
     Route: 065
     Dates: start: 20120723, end: 20120910
  15. VILDAGLIPTIN [Concomitant]
     Indication: PRODUCT USED FOR UNKNOWN INDICATION
     Route: 065
     Dates: start: 20120710, end: 20120716
  16. VILDAGLIPTIN [Concomitant]
     Route: 065
     Dates: start: 20120723, end: 20120910
  17. CARVEDILOL [Concomitant]
     Indication: PRODUCT USED FOR UNKNOWN INDICATION
     Route: 065
     Dates: start: 20120722, end: 20120910
  18. ENOXAPARIN [Concomitant]
     Indication: PRODUCT USED FOR UNKNOWN INDICATION
     Route: 065
     Dates: start: 20120723, end: 20120910
  19. OMEPRAZOLE [Concomitant]
     Indication: PRODUCT USED FOR UNKNOWN INDICATION
     Route: 065
     Dates: start: 20120716
  20. OMEPRAZOLE [Concomitant]
     Indication: ILEUS
     Route: 065
     Dates: start: 20120528, end: 20120716
  21. BACTRIMEL [Concomitant]
     Indication: PRODUCT USED FOR UNKNOWN INDICATION
     Route: 065
     Dates: start: 20120614, end: 20120716
  22. BACTRIMEL [Concomitant]
     Route: 065
     Dates: start: 20120723, end: 20120910

REACTIONS (4)
  - Ileus [Recovered/Resolved]
  - Rash [Recovered/Resolved]
  - Constipation [Recovered/Resolved]
  - Blood creatinine increased [Recovered/Resolved]
